FAERS Safety Report 19056080 (Version 4)
Quarter: 2021Q4

REPORT INFORMATION
  Report Type: Report from Study
  Country: US (occurrence: US)
  Receive Date: 20210325
  Receipt Date: 20211209
  Transmission Date: 20220303
  Serious: No
  Sender: FDA-Public Use
  Company Number: NVSC2021US063185

PATIENT
  Sex: Female
  Weight: 77.098 kg

DRUGS (2)
  1. COSENTYX [Suspect]
     Active Substance: SECUKINUMAB
     Indication: Psoriatic arthropathy
     Dosage: UNK UNK, QMO
     Route: 058
  2. COSENTYX [Suspect]
     Active Substance: SECUKINUMAB
     Dosage: 300 MG, QMO
     Route: 058

REACTIONS (7)
  - Hypersensitivity [Unknown]
  - Back pain [Unknown]
  - Pruritus [Unknown]
  - Arthralgia [Recovering/Resolving]
  - Condition aggravated [Unknown]
  - Pain in extremity [Unknown]
  - Drug ineffective [Unknown]
